FAERS Safety Report 6964107-7 (Version None)
Quarter: 2010Q3

REPORT INFORMATION
  Report Type: 
  Country: None (occurrence: None)
  Receive Date: 20100902
  Receipt Date: 20100823
  Transmission Date: 20110219
  Serious: Yes (Disabling)
  Sender: FDA-Public Use
  Company Number: IL-MYLANLABS-2010S1015291

PATIENT
  Age: 60 Year
  Sex: Female

DRUGS (4)
  1. FUROSEMIDE [Suspect]
     Dosage: 40-60 MG/DAY
     Route: 065
  2. FUROSEMIDE [Suspect]
     Dosage: APPROXIMATELY 1000 MG/DAY
     Route: 065
  3. ORLISTAT [Suspect]
     Dosage: 120-240 MG/DAY
     Route: 065
  4. ETORICOXIB [Suspect]
     Indication: ARTHRITIS
     Route: 065

REACTIONS (2)
  - DRUG ABUSE [None]
  - RENAL FAILURE [None]
